FAERS Safety Report 9432869 (Version 1)
Quarter: 2013Q3

REPORT INFORMATION
  Report Type: Report from Study
  Country: US (occurrence: US)
  Receive Date: 20130731
  Receipt Date: 20130731
  Transmission Date: 20140515
  Serious: Yes (Other)
  Sender: FDA-Public Use
  Company Number: PHHY2013US080310

PATIENT
  Age: 41 Year
  Sex: Female

DRUGS (7)
  1. GILENYA [Suspect]
     Indication: MULTIPLE SCLEROSIS
     Dosage: 0.5 MG, QD
     Route: 048
     Dates: end: 201307
  2. AMPYRA [Concomitant]
  3. LUNESTA [Concomitant]
  4. ZOMIG [Concomitant]
  5. GABAPENTIN [Concomitant]
     Route: 048
  6. BACLOFEN [Concomitant]
     Route: 048
  7. MOBIC [Concomitant]
     Route: 048

REACTIONS (3)
  - Bundle branch block right [Recovered/Resolved]
  - Palpitations [Unknown]
  - Tachycardia [Unknown]
